FAERS Safety Report 20879870 (Version 2)
Quarter: 2022Q3

REPORT INFORMATION
  Report Type: Spontaneous
  Country: US (occurrence: US)
  Receive Date: 20220526
  Receipt Date: 20220809
  Transmission Date: 20221027
  Serious: No
  Sender: FDA-Public Use
  Company Number: US-BRISTOL-MYERS SQUIBB COMPANY-2022-033491

PATIENT
  Age: 68 Year
  Sex: Male

DRUGS (2)
  1. REVLIMID [Suspect]
     Active Substance: LENALIDOMIDE
     Indication: Product used for unknown indication
     Route: 048
     Dates: start: 20210427
  2. REVLIMID [Suspect]
     Active Substance: LENALIDOMIDE
     Dosage: 1-21 DAYS
     Route: 065
     Dates: start: 20220602

REACTIONS (2)
  - Rash pruritic [Unknown]
  - No adverse event [Unknown]
